FAERS Safety Report 9011566 (Version 1)
Quarter: 2013Q1

REPORT INFORMATION
  Report Type: Spontaneous
  Country: US (occurrence: US)
  Receive Date: 20130108
  Receipt Date: 20130108
  Transmission Date: 20140127
  Serious: Yes (Hospitalization)
  Sender: FDA-Public Use
  Company Number: US-ELI_LILLY_AND_COMPANY-US201301001096

PATIENT
  Sex: Male

DRUGS (2)
  1. HUMATROPE [Suspect]
     Indication: RENAL FAILURE CHRONIC
     Dosage: 1.2 MG, QD
     Route: 058
     Dates: start: 20120508
  2. ARANESP [Concomitant]

REACTIONS (2)
  - Kidney transplant rejection [Unknown]
  - Off label use [Unknown]
